FAERS Safety Report 6203862-0 (Version None)
Quarter: 2009Q2

REPORT INFORMATION
  Report Type: 
  Country: None (occurrence: None)
  Receive Date: 20090527
  Receipt Date: 20090514
  Transmission Date: 20091009
  Serious: Yes (Hospitalization, Other)
  Sender: FDA-Public Use
  Company Number: TH-PFIZER INC-2009216695

PATIENT

DRUGS (3)
  1. XANAX [Suspect]
     Route: 048
  2. DIAZEPAM [Suspect]
     Route: 048
  3. DORMICUM TABLET ^ROCHE^ [Suspect]
     Route: 048

REACTIONS (7)
  - ALTERED STATE OF CONSCIOUSNESS [None]
  - BLOOD URINE PRESENT [None]
  - DRUG DEPENDENCE [None]
  - LIVER DISORDER [None]
  - MUSCULAR WEAKNESS [None]
  - RENAL IMPAIRMENT [None]
  - SUICIDE ATTEMPT [None]
